FAERS Safety Report 6200322-8 (Version None)
Quarter: 2009Q2

REPORT INFORMATION
  Report Type: 
  Country: None (occurrence: None)
  Receive Date: 20090522
  Receipt Date: 20090517
  Transmission Date: 20091009
  Serious: Yes (Other)
  Sender: FDA-Public Use
  Company Number: US-JNJFOC-20090504876

PATIENT
  Sex: Female
  Weight: 65.32 kg

DRUGS (8)
  1. DURAGESIC-100 [Suspect]
     Indication: PAIN
     Route: 062
  2. KEPPRA [Concomitant]
     Indication: NERVOUSNESS
     Route: 048
  3. LYRICA [Concomitant]
     Indication: FIBROMYALGIA
     Route: 048
  4. PAXIL [Concomitant]
     Indication: BIPOLAR DISORDER
     Route: 048
  5. FIORICET [Concomitant]
     Indication: MIGRAINE
     Route: 048
  6. PERCOCET [Concomitant]
     Indication: BREAKTHROUGH PAIN
     Route: 048
  7. TRAMADOL HCL [Concomitant]
     Indication: PAIN
     Route: 048
  8. METHOCARBAMOL [Concomitant]
     Indication: MUSCLE SPASMS

REACTIONS (3)
  - ABDOMINAL PAIN [None]
  - APHONIA [None]
  - GASTRITIS [None]
